FAERS Safety Report 5127874-3 (Version None)
Quarter: 2006Q4

REPORT INFORMATION
  Report Type: 
  Country: None (occurrence: None)
  Receive Date: 20061011
  Receipt Date: 20060922
  Transmission Date: 20070319
  Serious: Yes (Hospitalization, Other)
  Sender: FDA-Public Use
  Company Number: 2006RR-03876

PATIENT
  Age: 67 Year
  Sex: Male

DRUGS (5)
  1. CIPROFLOXACIN            FAMILY [Suspect]
     Indication: INFECTION
     Dosage: BID
     Dates: start: 20060905
  2. GENTAMICIN [Concomitant]
  3. TAZOSIN [Concomitant]
  4. AUGMENTIN [Concomitant]
  5. HEPARIN [Concomitant]

REACTIONS (8)
  - ERYTHEMA [None]
  - OEDEMA PERIPHERAL [None]
  - PAIN [None]
  - PARAESTHESIA [None]
  - SKIN DISCOLOURATION [None]
  - SKIN EXFOLIATION [None]
  - SKIN ULCER [None]
  - SKIN WARM [None]
